FAERS Safety Report 8518631-6 (Version None)
Quarter: 2012Q3

REPORT INFORMATION
  Report Type: 
  Country: None (occurrence: None)
  Receive Date: 20120718
  Receipt Date: 20120716
  Transmission Date: 20120928
  Serious: No
  Sender: FDA-Public Use
  Company Number: US-PFIZER INC-2012170802

PATIENT
  Sex: Male
  Weight: 113 kg

DRUGS (1)
  1. ADVIL [Suspect]
     Indication: TOOTHACHE
     Dosage: UNK
     Route: 048
     Dates: start: 20020101, end: 20120701

REACTIONS (1)
  - BLOOD URINE PRESENT [None]
